FAERS Safety Report 12798202 (Version 1)
Quarter: 2016Q3

REPORT INFORMATION
  Report Type: Spontaneous
  Country: BR (occurrence: BR)
  Receive Date: 20160930
  Receipt Date: 20160930
  Transmission Date: 20161109
  Serious: Yes (Other)
  Sender: FDA-Public Use
  Company Number: BR-BAUSCH-BL-2016-023487

PATIENT
  Age: 71 Year
  Sex: Male

DRUGS (1)
  1. PRIMIDONE. [Suspect]
     Active Substance: PRIMIDONE
     Indication: ESSENTIAL TREMOR
     Route: 065

REACTIONS (3)
  - Dupuytren^s contracture [Unknown]
  - Plantar fascial fibromatosis [Unknown]
  - Peyronie^s disease [Unknown]
